FAERS Safety Report 8399442-1 (Version None)
Quarter: 2012Q2

REPORT INFORMATION
  Report Type: 
  Country: None (occurrence: None)
  Receive Date: 20120323
  Receipt Date: 20110722
  Transmission Date: 20120825
  Serious: Yes (Other)
  Sender: FDA-Public Use
  Company Number: 163-21880-11012227

PATIENT
  Age: 53 Year
  Sex: Male

DRUGS (10)
  1. ATORVASTATIN CALCIUM [Concomitant]
  2. REVLIMID [Suspect]
     Indication: MULTIPLE MYELOMA
     Dosage: 25 MG, DAILY X 21 DAYS, PO, 15 MG, DAILY X 21 DAYS, PO
     Route: 048
     Dates: start: 20110401
  3. REVLIMID [Suspect]
     Indication: MULTIPLE MYELOMA
     Dosage: 25 MG, DAILY X 21 DAYS, PO, 15 MG, DAILY X 21 DAYS, PO
     Route: 048
     Dates: start: 20110514
  4. REVLIMID [Suspect]
     Indication: MULTIPLE MYELOMA
     Dosage: 25 MG, DAILY X 21 DAYS, PO, 15 MG, DAILY X 21 DAYS, PO
     Route: 048
     Dates: start: 20091207, end: 20100513
  5. LISINOPRIL [Concomitant]
  6. DEXAMETHASONE [Concomitant]
  7. VICODIN [Concomitant]
  8. LEVOTHROXINE (LEVOTHYROXINE) [Concomitant]
  9. ENOXAPARIN SODIUM [Concomitant]
  10. GLYBURIDE-METFORMIN (GLIBOMET) [Concomitant]

REACTIONS (7)
  - NEPHROLITHIASIS [None]
  - HYPERGLYCAEMIA [None]
  - HYPOTHYROIDISM [None]
  - DIARRHOEA [None]
  - RENAL FAILURE ACUTE [None]
  - MUSCLE SPASMS [None]
  - DIVERTICULITIS [None]
